FAERS Safety Report 10070644 (Version 3)
Quarter: 2014Q2

REPORT INFORMATION
  Report Type: Report from Study
  Country: US (occurrence: US)
  Receive Date: 20140410
  Receipt Date: 20140424
  Transmission Date: 20141212
  Serious: Yes (Hospitalization)
  Sender: FDA-Public Use
  Company Number: US-JNJFOC-20140404407

PATIENT
  Age: 12 Year
  Sex: Female
  Weight: 50.8 kg

DRUGS (6)
  1. REMICADE [Suspect]
     Indication: CROHN^S DISEASE
     Route: 042
     Dates: start: 200806, end: 200812
  2. PREDNISONE [Concomitant]
     Route: 065
  3. BACTRIM [Concomitant]
     Route: 065
  4. MINOCYCLINE [Concomitant]
     Route: 065
  5. ZOFRAN [Concomitant]
     Route: 065
  6. PROTOPIC [Concomitant]
     Route: 065

REACTIONS (1)
  - Foreign body [Recovered/Resolved]
